FAERS Safety Report 21706915 (Version 1)
Quarter: 2022Q4

REPORT INFORMATION
  Report Type: Spontaneous
  Country: TH (occurrence: TH)
  Receive Date: 20221209
  Receipt Date: 20221209
  Transmission Date: 20230113
  Serious: Yes (Other)
  Sender: FDA-Public Use
  Company Number: TH-BoehringerIngelheim-2022-BI-206976

PATIENT
  Age: 83 Year
  Sex: Female

DRUGS (1)
  1. PRADAXA [Suspect]
     Active Substance: DABIGATRAN ETEXILATE MESYLATE
     Indication: Product used for unknown indication
     Route: 048
     Dates: end: 20221206

REACTIONS (2)
  - Road traffic accident [Unknown]
  - Surgery [Unknown]

NARRATIVE: CASE EVENT DATE: 20221206
